FAERS Safety Report 14977867 (Version 1)
Quarter: 2018Q2

REPORT INFORMATION
  Report Type: Spontaneous
  Country: US (occurrence: US)
  Receive Date: 20180515
  Receipt Date: 20180515
  Transmission Date: 20180711
  Serious: Yes (Life-Threatening, Other)
  Sender: FDA-Public Use
  Company Number: None

PATIENT
  Age: 28 Day
  Sex: Male
  Weight: 111.6 kg

DRUGS (3)
  1. CBD [Concomitant]
     Active Substance: CANNABIDIOL
  2. ADDERALL [Suspect]
     Active Substance: AMPHETAMINE ASPARTATE\AMPHETAMINE SULFATE\DEXTROAMPHETAMINE SACCHARATE\DEXTROAMPHETAMINE SULFATE
     Indication: ATTENTION DEFICIT/HYPERACTIVITY DISORDER
     Dosage: ?          QUANTITY:1 TABLET(S);?
     Route: 048
     Dates: start: 20070416, end: 20180515
  3. NORCO [Concomitant]
     Active Substance: ACETAMINOPHEN\HYDROCODONE BITARTRATE

REACTIONS (7)
  - Skin odour abnormal [None]
  - Acne [None]
  - Anger [None]
  - Mood altered [None]
  - Drug dispensing error [None]
  - Product substitution issue [None]
  - Victim of crime [None]

NARRATIVE: CASE EVENT DATE: 20180510
